APPROVED DRUG PRODUCT: GANCICLOVIR SODIUM
Active Ingredient: GANCICLOVIR SODIUM
Strength: EQ 500MG BASE/VIAL
Dosage Form/Route: INJECTABLE;INJECTION
Application: A090658 | Product #001 | TE Code: AP
Applicant: FRESENIUS KABI USA LLC
Approved: Jun 21, 2010 | RLD: No | RS: No | Type: RX